FAERS Safety Report 15834137 (Version 1)
Quarter: 2019Q1

REPORT INFORMATION
  Report Type: Spontaneous
  Country: US (occurrence: US)
  Receive Date: 20190116
  Receipt Date: 20190116
  Transmission Date: 20190417
  Serious: Yes (Other)
  Sender: FDA-Public Use
  Company Number: PHEH2019US001900

PATIENT
  Age: 23 Year

DRUGS (5)
  1. TEMOZOLOMIDE. [Concomitant]
     Active Substance: TEMOZOLOMIDE
     Dosage: UNK 150-200 MG/M2 D1-5 PER CYCLE WITH 28 DAY CYCLES
  2. TOPOTECAN [Suspect]
     Active Substance: TOPOTECAN HYDROCHLORIDE
     Indication: GANGLIOGLIOMA
     Dosage: UNK (WEEKLY)
     Route: 037
  3. LOMUSTINE. [Suspect]
     Active Substance: LOMUSTINE
     Indication: GANGLIOGLIOMA
     Route: 065
  4. TEMOZOLOMIDE. [Concomitant]
     Active Substance: TEMOZOLOMIDE
     Indication: GANGLIOGLIOMA
     Dosage: 75 MG/M2, UNK
     Route: 065
     Dates: end: 20180330
  5. BEVACIZUMAB. [Suspect]
     Active Substance: BEVACIZUMAB
     Indication: GANGLIOGLIOMA
     Route: 065

REACTIONS (4)
  - Drug ineffective [Unknown]
  - Malignant neoplasm progression [Unknown]
  - Ganglioglioma [Unknown]
  - Product use in unapproved indication [Unknown]
